FAERS Safety Report 11215571 (Version 1)
Quarter: 2015Q2

REPORT INFORMATION
  Report Type: Spontaneous
  Country: CO (occurrence: CO)
  Receive Date: 20150624
  Receipt Date: 20150624
  Transmission Date: 20150821
  Serious: Yes (Hospitalization, Other)
  Sender: FDA-Public Use
  Company Number: CO-CIPLA LTD.-2015CO05059

PATIENT

DRUGS (10)
  1. CLONAZEPAM. [Suspect]
     Active Substance: CLONAZEPAM
     Indication: PARTIAL SEIZURES
     Dosage: UNK
     Route: 065
  2. TOPIRAMATE. [Suspect]
     Active Substance: TOPIRAMATE
     Indication: PARTIAL SEIZURES
     Dosage: UNK
     Route: 065
  3. LAMOTRIGINE. [Suspect]
     Active Substance: LAMOTRIGINE
     Indication: PARTIAL SEIZURES
     Dosage: UNK
     Route: 065
  4. CARBAMAZEPINE. [Suspect]
     Active Substance: CARBAMAZEPINE
     Indication: PARTIAL SEIZURES
     Dosage: UNK
     Route: 065
  5. PHENOBARBITAL. [Suspect]
     Active Substance: PHENOBARBITAL
     Indication: PARTIAL SEIZURES
     Dosage: UNK
     Route: 065
  6. GABAPENTIN. [Suspect]
     Active Substance: GABAPENTIN
     Indication: PARTIAL SEIZURES
     Dosage: UNK
     Route: 065
  7. PRIMIDONE. [Suspect]
     Active Substance: PRIMIDONE
     Indication: PARTIAL SEIZURES
     Dosage: UNK
     Route: 065
  8. LEVEPSY [Suspect]
     Active Substance: LEVETIRACETAM
     Indication: PARTIAL SEIZURES
     Dosage: UNK
     Route: 065
  9. OXCARBAZEPINE. [Suspect]
     Active Substance: OXCARBAZEPINE
     Indication: PARTIAL SEIZURES
     Dosage: UNK
     Route: 065
  10. CLOBAZAM [Suspect]
     Active Substance: CLOBAZAM
     Indication: PARTIAL SEIZURES
     Dosage: UNK
     Route: 065

REACTIONS (4)
  - Ataxia [Unknown]
  - Status epilepticus [Recovered/Resolved]
  - Rash [Unknown]
  - Treatment failure [Unknown]
